FAERS Safety Report 25841840 (Version 1)
Quarter: 2025Q3

REPORT INFORMATION
  Report Type: Report from Study
  Country: US (occurrence: US)
  Receive Date: 20250924
  Receipt Date: 20250924
  Transmission Date: 20251021
  Serious: Yes (Hospitalization, Other)
  Sender: TG THERAPEUTICS
  Company Number: US-TG THERAPEUTICS INC.-TGT006064

PATIENT

DRUGS (2)
  1. UBLITUXIMAB [Suspect]
     Active Substance: UBLITUXIMAB
     Indication: Multiple sclerosis
     Route: 042
     Dates: start: 20250411, end: 20250411
  2. UBLITUXIMAB [Suspect]
     Active Substance: UBLITUXIMAB
     Route: 042
     Dates: start: 20250425, end: 20250425

REACTIONS (5)
  - Kidney infection [Unknown]
  - Migraine [Unknown]
  - Arthralgia [Unknown]
  - Toothache [Unknown]
  - Agitation [Unknown]

NARRATIVE: CASE EVENT DATE: 20250101
